FAERS Safety Report 7280835-0 (Version None)
Quarter: 2011Q1

REPORT INFORMATION
  Report Type: 
  Country: None (occurrence: None)
  Receive Date: 20110203
  Receipt Date: 20110203
  Transmission Date: 20110831
  Serious: No
  Sender: FDA-Public Use
  Company Number: None

PATIENT
  Sex: Male
  Weight: 114.3 kg

DRUGS (2)
  1. TAXOL [Suspect]
     Dosage: 464 MG
     Dates: end: 20110110
  2. CARBOPLATIN [Suspect]
     Dosage: 383 MG
     Dates: end: 20110110

REACTIONS (6)
  - DRUG HYPERSENSITIVITY [None]
  - HYPERHIDROSIS [None]
  - BLOOD PRESSURE IMMEASURABLE [None]
  - HYPOTONIA [None]
  - UNRESPONSIVE TO STIMULI [None]
  - INCORRECT DRUG ADMINISTRATION RATE [None]
